FAERS Safety Report 5288412-8 (Version None)
Quarter: 2007Q2

REPORT INFORMATION
  Report Type: 
  Country: None (occurrence: None)
  Receive Date: 20070405
  Receipt Date: 20070327
  Transmission Date: 20071010
  Serious: Yes (Disabling)
  Sender: FDA-Public Use
  Company Number: GB-MERCK-0703GBR00128

PATIENT
  Age: 84 Year
  Sex: Male

DRUGS (3)
  1. COZAAR [Suspect]
     Route: 048
     Dates: start: 20070201, end: 20070324
  2. TAMSULOSIN HYDROCHLORIDE [Concomitant]
     Indication: BENIGN PROSTATIC HYPERPLASIA
     Route: 065
  3. FELODIPINE [Concomitant]
     Route: 065

REACTIONS (8)
  - ARTHRALGIA [None]
  - BACK PAIN [None]
  - FATIGUE [None]
  - GROIN PAIN [None]
  - JOINT SWELLING [None]
  - MUSCULOSKELETAL PAIN [None]
  - PAIN IN EXTREMITY [None]
  - PARAESTHESIA [None]
